FAERS Safety Report 8881412 (Version 1)
Quarter: 2012Q4

REPORT INFORMATION
  Report Type: 
  Country: ES (occurrence: ES)
  Receive Date: 20121101
  Receipt Date: 20121101
  Transmission Date: 20130627
  Serious: Yes (Other)
  Sender: FDA-Public Use
  Company Number: ES-PFIZER INC-2012268548

PATIENT
  Age: 65 Year
  Sex: Male

DRUGS (6)
  1. TAZOCEL [Suspect]
     Dosage: 4 g/ 0.5 g, 3x/day
     Route: 042
     Dates: start: 20120413, end: 20120516
  2. CLINDAMICINA COMBINO PHARM [Suspect]
     Dosage: 800 mg, 3x/day
     Route: 042
     Dates: start: 20120417, end: 20120516
  3. BEMIPARIN [Concomitant]
     Dosage: 0.2 ml/day
     Route: 058
     Dates: start: 20120426, end: 20120516
  4. DIGOXIN [Concomitant]
     Indication: CARDIOMYOPATHY
     Dosage: 1.25 mg, weekly
     Route: 048
     Dates: start: 2006
  5. FUROSEMIDE [Concomitant]
     Indication: CARDIAC FAILURE
     Dosage: 40 mg/day
     Route: 048
     Dates: start: 2006
  6. ALDACTONE [Concomitant]
     Indication: CARDIAC FAILURE
     Dosage: 25 mg/day
     Route: 048
     Dates: start: 2006

REACTIONS (1)
  - Toxic skin eruption [Recovered/Resolved]
